FAERS Safety Report 15515778 (Version 6)
Quarter: 2020Q3

REPORT INFORMATION
  Report Type: Spontaneous
  Country: FR (occurrence: FR)
  Receive Date: 20181017
  Receipt Date: 20200923
  Transmission Date: 20201102
  Serious: Yes (Hospitalization, Disabling, Other)
  Sender: FDA-Public Use
  Company Number: FR-AUROBINDO-AUR-APL-2018-049422

PATIENT
  Age: 50 Year
  Sex: Female

DRUGS (6)
  1. ALPRAZOLAM ARROW [Concomitant]
     Active Substance: ALPRAZOLAM
     Indication: PRODUCT USED FOR UNKNOWN INDICATION
     Dosage: UNK
     Route: 065
     Dates: start: 20160415
  2. LAMICTAL [Suspect]
     Active Substance: LAMOTRIGINE
     Indication: DEPRESSION
     Dosage: 1 DOSAGE FORM, DAILY AND THEN 2 TABLETS DAILY
     Route: 048
     Dates: start: 20160415, end: 20160513
  3. LAMOTRIGINE ARROW DISPERSIBLE TABLET 100MG [Suspect]
     Active Substance: LAMOTRIGINE
     Indication: DEPRESSION
     Dosage: 1 DOSAGE FORM, DAILY (25 MG DAILY AND THEN INCREASED TO 100 MG DAILY)
     Route: 048
     Dates: start: 20160514, end: 20160524
  4. LORMETAZEPAM [Concomitant]
     Active Substance: LORMETAZEPAM
     Indication: PRODUCT USED FOR UNKNOWN INDICATION
     Dosage: UNK
     Route: 065
     Dates: start: 20160331
  5. ALPRAZOLAM. [Concomitant]
     Active Substance: ALPRAZOLAM
     Indication: PRODUCT USED FOR UNKNOWN INDICATION
     Dosage: UNK
     Route: 065
     Dates: start: 20160331
  6. LORMETAZEPAM ARROW [Concomitant]
     Active Substance: LORMETAZEPAM
     Indication: PRODUCT USED FOR UNKNOWN INDICATION
     Dosage: UNK
     Route: 065

REACTIONS (2)
  - Blindness [Not Recovered/Not Resolved]
  - Erythema multiforme [Recovered/Resolved with Sequelae]

NARRATIVE: CASE EVENT DATE: 20160522
